FAERS Safety Report 7345159-1 (Version None)
Quarter: 2011Q1

REPORT INFORMATION
  Report Type: 
  Country: None (occurrence: None)
  Receive Date: 20110310
  Receipt Date: 20110214
  Transmission Date: 20110831
  Serious: Yes (Other)
  Sender: FDA-Public Use
  Company Number: US-BAYER-201036410NA

PATIENT
  Sex: Female

DRUGS (3)
  1. YASMIN [Suspect]
     Indication: CONTRACEPTION
     Dosage: UNK
     Dates: start: 20050722
  2. EFFEXOR [Concomitant]
     Indication: ANXIETY
     Route: 048
  3. DIAMOX [Concomitant]
     Indication: PAPILLOEDEMA
     Dosage: 250 MG, UNK

REACTIONS (3)
  - HEADACHE [None]
  - BLINDNESS TRANSIENT [None]
  - INTRACRANIAL VENOUS SINUS THROMBOSIS [None]
